FAERS Safety Report 16308692 (Version 1)
Quarter: 2019Q2

REPORT INFORMATION
  Report Type: Spontaneous
  Country: US (occurrence: US)
  Receive Date: 20190514
  Receipt Date: 20190514
  Transmission Date: 20190711
  Serious: No
  Sender: FDA-Public Use
  Company Number: US-MYLANLABS-2019M1041339

PATIENT
  Sex: Female
  Weight: 77 kg

DRUGS (1)
  1. FENTANYL TRANSDERMAL SYSTEM [Suspect]
     Active Substance: FENTANYL
     Indication: PAIN
     Dosage: 1 DOSAGE FORM, QH
     Route: 062

REACTIONS (11)
  - Depression [Unknown]
  - Wrong technique in product usage process [Unknown]
  - Incorrect dose administered [Unknown]
  - Feeling abnormal [Unknown]
  - Withdrawal syndrome [Unknown]
  - Anxiety [Unknown]
  - Product dose omission [Unknown]
  - Pain [Unknown]
  - Product adhesion issue [Not Recovered/Not Resolved]
  - Therapeutic product effect decreased [Unknown]
  - Depressed mood [Unknown]
